FAERS Safety Report 21320762 (Version 1)
Quarter: 2022Q3

REPORT INFORMATION
  Report Type: Spontaneous
  Country: GB (occurrence: GB)
  Receive Date: 20220912
  Receipt Date: 20220912
  Transmission Date: 20221027
  Serious: Yes (Disabling, Other)
  Sender: FDA-Public Use
  Company Number: GB-JNJFOC-20220900347

PATIENT
  Age: 40 Year
  Sex: Female

DRUGS (1)
  1. ACETAMINOPHEN [Suspect]
     Active Substance: ACETAMINOPHEN
     Indication: Product used for unknown indication
     Route: 065

REACTIONS (7)
  - Heart rate decreased [Recovered/Resolved]
  - Hypotension [Recovering/Resolving]
  - Dizziness [Recovered/Resolved]
  - Asthenia [Recovering/Resolving]
  - Illness [Unknown]
  - Disorientation [Unknown]
  - Balance disorder [Unknown]
